FAERS Safety Report 25499348 (Version 1)
Quarter: 2025Q3

REPORT INFORMATION
  Report Type: Spontaneous
  Country: CN (occurrence: CN)
  Receive Date: 20250701
  Receipt Date: 20250701
  Transmission Date: 20251020
  Serious: Yes (Hospitalization)
  Sender: PFIZER
  Company Number: CN-PFIZER INC-PV202500076987

PATIENT
  Age: 60 Year
  Sex: Male

DRUGS (2)
  1. CYTARABINE [Suspect]
     Active Substance: CYTARABINE
     Indication: Acute myeloid leukaemia
     Dosage: 0.019 G, 2X/DAY
     Route: 041
     Dates: start: 20250606, end: 20250619
  2. ACLARUBICIN HYDROCHLORIDE [Concomitant]
     Active Substance: ACLARUBICIN HYDROCHLORIDE
     Indication: Acute myeloid leukaemia
     Dosage: 13 MG, 2X/DAY
     Route: 041
     Dates: start: 20250606, end: 20250613

REACTIONS (4)
  - Granulocyte count decreased [Not Recovered/Not Resolved]
  - Full blood count decreased [Not Recovered/Not Resolved]
  - Myelosuppression [Not Recovered/Not Resolved]
  - Asthenia [Not Recovered/Not Resolved]

NARRATIVE: CASE EVENT DATE: 20250622
